FAERS Safety Report 15789793 (Version 1)
Quarter: 2019Q1

REPORT INFORMATION
  Report Type: Spontaneous
  Country: PT (occurrence: PT)
  Receive Date: 20190104
  Receipt Date: 20190104
  Transmission Date: 20190417
  Serious: Yes (Death, Other)
  Sender: FDA-Public Use
  Company Number: PT-TEVA-2018-PT-993736

PATIENT
  Age: 80 Year
  Sex: Female

DRUGS (1)
  1. QUETIAPINE FUMARATE. [Suspect]
     Active Substance: QUETIAPINE FUMARATE
     Dosage: 200 MILLIGRAM DAILY;
     Route: 065

REACTIONS (1)
  - Neuroleptic malignant syndrome [Fatal]
